FAERS Safety Report 7048994-2 (Version None)
Quarter: 2010Q4

REPORT INFORMATION
  Report Type: 
  Country: None (occurrence: None)
  Receive Date: 20101018
  Receipt Date: 20101006
  Transmission Date: 20110411
  Serious: Yes (Death)
  Sender: FDA-Public Use
  Company Number: GB-GENZYME-CLOF-1001234

PATIENT
  Sex: Female

DRUGS (5)
  1. EVOLTRA [Suspect]
     Indication: ACUTE MYELOID LEUKAEMIA
     Dosage: UNK
     Route: 042
     Dates: start: 20100907, end: 20100923
  2. DAUNORUBICIN HCL [Suspect]
     Indication: ACUTE MYELOID LEUKAEMIA
     Dosage: UNK
     Route: 042
     Dates: start: 20100907, end: 20100923
  3. ACYCLOVIR [Concomitant]
     Indication: PRODUCT USED FOR UNKNOWN INDICATION
     Dosage: 200 MG, TID
     Dates: start: 20100907
  4. CO-TRIMAZOLE [Concomitant]
     Indication: PRODUCT USED FOR UNKNOWN INDICATION
     Dosage: 960 MG, BID
     Dates: start: 20100907
  5. AMIKACIN [Concomitant]
     Indication: PROPHYLAXIS
     Dosage: 7 MG/KG, UNK
     Dates: start: 20100923

REACTIONS (2)
  - CARDIAC ARREST [None]
  - ENTEROBACTER BACTERAEMIA [None]
